FAERS Safety Report 8409821-1 (Version None)
Quarter: 2012Q2

REPORT INFORMATION
  Report Type: 
  Country: None (occurrence: None)
  Receive Date: 20120605
  Receipt Date: 20120530
  Transmission Date: 20120825
  Serious: No
  Sender: FDA-Public Use
  Company Number: US-PFIZER INC-2012130685

PATIENT
  Sex: Female
  Weight: 56.7 kg

DRUGS (5)
  1. PREMARIN [Suspect]
     Indication: OFF LABEL USE
     Dosage: ONCE AFTER EVERY TWO NIGHTS
     Route: 067
     Dates: start: 20110801
  2. NITROFURANTOIN [Suspect]
     Indication: URINARY TRACT INFECTION
     Dosage: 100 MG, DAILY
     Route: 048
     Dates: start: 20110901, end: 20111001
  3. PREVACID [Concomitant]
     Indication: GASTROOESOPHAGEAL REFLUX DISEASE
     Dosage: 30 MG, DAILY
  4. PREMARIN [Suspect]
     Indication: URINARY TRACT INFECTION
  5. SIMVASTATIN [Concomitant]
     Indication: BLOOD CHOLESTEROL INCREASED
     Dosage: 5 MG, DAILY

REACTIONS (4)
  - RASH MACULAR [None]
  - DRUG ADMINISTRATION ERROR [None]
  - ALOPECIA [None]
  - BURNING SENSATION [None]
